FAERS Safety Report 4444828-0 (Version None)
Quarter: 2004Q3

REPORT INFORMATION
  Report Type: 
  Country: None (occurrence: None)
  Receive Date: 20040909
  Receipt Date: 20040729
  Transmission Date: 20050211
  Serious: Yes (Hospitalization)
  Sender: FDA-Public Use
  Company Number: FR-BRISTOL-MYERS SQUIBB COMPANY-12658753

PATIENT
  Age: 54 Year
  Sex: Male

DRUGS (2)
  1. CETUXIMAB [Suspect]
     Indication: COLORECTAL CANCER
     Dosage: MOST RECENT INFUSION WAS ADMINISTERED 15-JUL-2004-THE 5TH INFUSION.DOSE RE-INTRODUCED.
     Route: 041
     Dates: start: 20040617
  2. IRINOTECAN [Suspect]
     Indication: COLORECTAL CANCER
     Dosage: MOST RECENT INFUSION ADMINISTERED 08-JUL-2004(2ND INFUSION).
     Route: 042
     Dates: start: 20040617

REACTIONS (2)
  - ABDOMINAL PAIN [None]
  - VOMITING [None]
